FAERS Safety Report 7256844-4 (Version None)
Quarter: 2011Q1

REPORT INFORMATION
  Report Type: 
  Country: None (occurrence: None)
  Receive Date: 20110129
  Receipt Date: 20100614
  Transmission Date: 20110831
  Serious: No
  Sender: FDA-Public Use
  Company Number: US-ABBOTT-10P-163-0652358-00

PATIENT
  Age: 32 Year
  Sex: Female

DRUGS (2)
  1. DIMOX [Concomitant]
     Indication: PRODUCT USED FOR UNKNOWN INDICATION
  2. HUMIRA [Suspect]
     Indication: PRODUCT USED FOR UNKNOWN INDICATION
     Dosage: HAS HAD 4 INJECTIONS
     Route: 048

REACTIONS (1)
  - RASH [None]
